FAERS Safety Report 9317976 (Version 1)
Quarter: 2013Q2

REPORT INFORMATION
  Report Type: Spontaneous
  Country: US (occurrence: US)
  Receive Date: 20130530
  Receipt Date: 20130530
  Transmission Date: 20140414
  Serious: No
  Sender: FDA-Public Use
  Company Number: US-GLAXOSMITHKLINE-A0998574A

PATIENT
  Age: 87 Year
  Sex: Female
  Weight: 3.2 kg

DRUGS (2)
  1. VENTOLIN [Suspect]
     Route: 050
  2. ATIVAN [Concomitant]
     Dosage: .5MG AS REQUIRED

REACTIONS (2)
  - Incorrect route of drug administration [Not Recovered/Not Resolved]
  - Drug administration error [Unknown]
